FAERS Safety Report 20680916 (Version 4)
Quarter: 2022Q3

REPORT INFORMATION
  Report Type: Report from Study
  Country: US (occurrence: US)
  Receive Date: 20220406
  Receipt Date: 20220924
  Transmission Date: 20221027
  Serious: No
  Sender: FDA-Public Use
  Company Number: US-NOVARTISTESTPH-NVSC2022US078512

PATIENT
  Sex: Female

DRUGS (2)
  1. COSENTYX [Suspect]
     Active Substance: SECUKINUMAB
     Indication: Psoriatic arthropathy
     Dosage: 300 MG, QW
     Route: 058
  2. PERCOCET [Suspect]
     Active Substance: ACETAMINOPHEN\OXYCODONE HYDROCHLORIDE
     Indication: Back pain
     Dosage: UNK
     Route: 065

REACTIONS (10)
  - Back pain [Unknown]
  - Rash [Unknown]
  - Gastrointestinal disorder [Unknown]
  - Constipation [Unknown]
  - Muscle spasms [Unknown]
  - Chills [Unknown]
  - Pyrexia [Unknown]
  - Nerve compression [Unknown]
  - Influenza [Unknown]
  - Diarrhoea [Unknown]
